FAERS Safety Report 6489775-8 (Version None)
Quarter: 2009Q4

REPORT INFORMATION
  Report Type: 
  Country: None (occurrence: None)
  Receive Date: 20091207
  Receipt Date: 20091123
  Transmission Date: 20100525
  Serious: Yes (Hospitalization)
  Sender: FDA-Public Use
  Company Number: 2009AC000414

PATIENT
  Age: 84 Year
  Sex: Female

DRUGS (17)
  1. DIGOXIN [Suspect]
     Dosage: PO
     Route: 048
     Dates: start: 20070101
  2. ASPIRIN [Concomitant]
  3. BONIVA [Concomitant]
  4. CARDIZEM [Concomitant]
  5. CENTRUM MULITPLE [Concomitant]
  6. VITAMINS WITH MINERALS [Concomitant]
  7. ENALAPRIL MALEATE [Concomitant]
  8. GLIPIZIDE [Concomitant]
  9. LASIX [Concomitant]
  10. METAMUCIL [Concomitant]
  11. METOPROLOL TARTRATE [Concomitant]
  12. POTASSIUM CHLORIDE [Concomitant]
  13. PREVACID [Concomitant]
  14. SYNTHROID [Concomitant]
  15. WARFARIN SODIUM [Concomitant]
  16. K-DUR [Concomitant]
  17. XOPENEX [Concomitant]

REACTIONS (15)
  - ABASIA [None]
  - ATRIAL FIBRILLATION [None]
  - CARDIAC FAILURE CONGESTIVE [None]
  - CARDIAC VALVE DISEASE [None]
  - CATARACT OPERATION [None]
  - CORONARY ARTERY DISEASE [None]
  - DYSPNOEA [None]
  - ECONOMIC PROBLEM [None]
  - MULTIPLE INJURIES [None]
  - MUSCULOSKELETAL PAIN [None]
  - ROTATOR CUFF SYNDROME [None]
  - SURGERY [None]
  - THERAPEUTIC AGENT TOXICITY [None]
  - TRANSIENT ISCHAEMIC ATTACK [None]
  - UNEVALUABLE EVENT [None]
